FAERS Safety Report 26121771 (Version 1)
Quarter: 2025Q4

REPORT INFORMATION
  Report Type: Spontaneous
  Country: US (occurrence: None)
  Receive Date: 20251204
  Receipt Date: 20251204
  Transmission Date: 20260118
  Serious: Yes (Hospitalization)
  Sender: FDA-CTU
  Company Number: None

PATIENT
  Sex: Male
  Weight: 112.95 kg

DRUGS (1)
  1. WINREVAIR [Suspect]
     Active Substance: SOTATERCEPT-CSRK
     Indication: Pulmonary arterial hypertension
     Dosage: 1.1 ML EVEY 3 WEEKS SUBCUTANEOUS
     Route: 058
     Dates: start: 20250128

REACTIONS (3)
  - Platelet count decreased [None]
  - Splenic infarction [None]
  - Therapy interrupted [None]
